FAERS Safety Report 4515806-8 (Version None)
Quarter: 2004Q4

REPORT INFORMATION
  Report Type: 
  Country: None (occurrence: None)
  Receive Date: 20041001
  Receipt Date: 20040524
  Transmission Date: 20050328
  Serious: Yes (Other)
  Sender: FDA-Public Use
  Company Number: 001603

PATIENT
  Age: 51 Year
  Sex: Female

DRUGS (4)
  1. MEDROXYPROGESTERONE ACETATE [Suspect]
     Dates: start: 20000601, end: 20010501
  2. PREMARIN [Suspect]
     Dates: start: 20000601, end: 20010501
  3. ESTRATEST [Suspect]
     Dates: start: 20010401, end: 20010801
  4. FEMHRT [Suspect]
     Dates: start: 20010701, end: 20011001

REACTIONS (2)
  - DEEP VEIN THROMBOSIS [None]
  - PULMONARY EMBOLISM [None]
